FAERS Safety Report 7074654-8 (Version None)
Quarter: 2010Q4

REPORT INFORMATION
  Report Type: 
  Country: None (occurrence: None)
  Receive Date: 20101029
  Receipt Date: 20101025
  Transmission Date: 20110411
  Serious: Yes (Hospitalization)
  Sender: FDA-Public Use
  Company Number: B0665561A

PATIENT
  Age: 3 Year
  Sex: Female
  Weight: 18 kg

DRUGS (4)
  1. AUGMENTIN '125' [Suspect]
     Indication: UPPER RESPIRATORY TRACT INFECTION
     Route: 048
     Dates: start: 20100520, end: 20100522
  2. VALPROATE SODIUM [Suspect]
     Indication: PRODUCT USED FOR UNKNOWN INDICATION
     Dosage: 200MG TWICE PER DAY
     Route: 048
     Dates: start: 20100301, end: 20100522
  3. AMOXICILLIN [Suspect]
     Indication: TONSILLITIS
     Route: 065
     Dates: start: 20100601, end: 20100601
  4. URBANYL [Concomitant]
     Dosage: 10MG TWICE PER DAY
     Route: 065

REACTIONS (2)
  - ABDOMINAL PAIN [None]
  - PANCREATITIS ACUTE [None]
